FAERS Safety Report 7451069-1 (Version None)
Quarter: 2011Q2

REPORT INFORMATION
  Report Type: 
  Country: None (occurrence: None)
  Receive Date: 20110502
  Receipt Date: 20110427
  Transmission Date: 20111010
  Serious: Yes (Other)
  Sender: FDA-Public Use
  Company Number: US-AMGEN-USASP2011015916

PATIENT
  Sex: Male

DRUGS (3)
  1. CHEMOTHERAPEUTICS NOS [Concomitant]
  2. NPLATE [Suspect]
     Indication: IDIOPATHIC THROMBOCYTOPENIC PURPURA
     Dosage: UNK
     Dates: start: 20100324, end: 20110417
  3. CORTICOSTEROIDS [Concomitant]

REACTIONS (2)
  - THROMBOCYTOPENIA [None]
  - ANAL CANCER [None]
